FAERS Safety Report 9100687 (Version 1)
Quarter: 2013Q1

REPORT INFORMATION
  Report Type: Spontaneous
  Country: US (occurrence: US)
  Receive Date: 20130129
  Receipt Date: 20130129
  Transmission Date: 20140127
  Serious: No
  Sender: FDA-Public Use
  Company Number: US-TARO-2012P1068133

PATIENT
  Age: 81 Year
  Sex: Female
  Weight: 49.9 kg

DRUGS (1)
  1. FLUOCINONIDE 0.05% [Suspect]
     Indication: DANDRUFF
     Route: 061
     Dates: start: 201210, end: 20121101

REACTIONS (3)
  - Application site papules [Recovering/Resolving]
  - Application site pain [Recovering/Resolving]
  - Application site pruritus [Recovering/Resolving]
